FAERS Safety Report 6007791-7 (Version None)
Quarter: 2008Q4

REPORT INFORMATION
  Report Type: 
  Country: None (occurrence: None)
  Receive Date: 20081217
  Receipt Date: 20080609
  Transmission Date: 20090506
  Serious: No
  Sender: FDA-Public Use
  Company Number: US-ASTRAZENECA-2008UW11547

PATIENT
  Age: 83 Year
  Sex: Female
  Weight: 68 kg

DRUGS (8)
  1. CRESTOR [Suspect]
     Route: 048
     Dates: start: 20080401, end: 20080501
  2. VESISCARE [Concomitant]
  3. AVAPRO [Concomitant]
  4. ACTONEL [Concomitant]
  5. LEVOTHYROXINE SODIUM [Concomitant]
  6. METOPROLOL TARTRATE [Concomitant]
  7. ASPIRIN [Concomitant]
  8. VIACTIV [Concomitant]

REACTIONS (1)
  - LIVER DISORDER [None]
